FAERS Safety Report 23779047 (Version 1)
Quarter: 2024Q2

REPORT INFORMATION
  Report Type: Spontaneous
  Country: US (occurrence: None)
  Receive Date: 20240424
  Receipt Date: 20240424
  Transmission Date: 20240716
  Serious: Yes (Hospitalization)
  Sender: FDA-Public Use
  Company Number: None

PATIENT
  Age: 58 Year
  Sex: Male
  Weight: 77 kg

DRUGS (1)
  1. CEFTRIAXONE SODIUM [Suspect]
     Active Substance: CEFTRIAXONE SODIUM
     Indication: Product used for unknown indication
     Dosage: FREQUENCY : DAILY;?OTHER ROUTE : IV;?
     Route: 050
     Dates: start: 20230619, end: 20230619

REACTIONS (1)
  - Tachypnoea [None]

NARRATIVE: CASE EVENT DATE: 20230619
